FAERS Safety Report 8950018 (Version 1)
Quarter: 2012Q4

REPORT INFORMATION
  Report Type: 
  Country: US (occurrence: US)
  Receive Date: 20121205
  Receipt Date: 20121205
  Transmission Date: 20130627
  Serious: No
  Sender: FDA-Public Use
  Company Number: US-009507513-1210USA008103

PATIENT
  Age: 53 Year
  Sex: Female
  Weight: 58.96 kg

DRUGS (4)
  1. VICTRELIS [Suspect]
     Dosage: TAKE 800MG (4 CAPSULES) BY MOUTH THREE TIMES A DAY EVERY 7-9 HOURS START ON WEEK 5
     Route: 048
     Dates: start: 20120718
  2. RIBAPAK [Suspect]
     Indication: HEPATITIS C
     Dosage: 600 mg, bid
     Route: 048
     Dates: start: 20120613
  3. PEGASYS [Suspect]
     Dosage: UNK
     Route: 058
     Dates: start: 20120613
  4. TYLENOL [Concomitant]
     Dosage: 8 HR
     Route: 048

REACTIONS (3)
  - Migraine [Unknown]
  - Insomnia [Unknown]
  - Insomnia [Unknown]
